FAERS Safety Report 4969008-1 (Version None)
Quarter: 2006Q2

REPORT INFORMATION
  Report Type: 
  Country: None (occurrence: None)
  Receive Date: 20060405
  Receipt Date: 20060322
  Transmission Date: 20061013
  Serious: Yes (Life-Threatening, Hospitalization)
  Sender: FDA-Public Use
  Company Number: 2006US-01840

PATIENT
  Age: 40 Year
  Sex: Female

DRUGS (3)
  1. FLUOXETINE [Suspect]
  2. AMITRIPTYLINE HCL [Concomitant]
  3. CLOMIPRAMINE HCL [Concomitant]

REACTIONS (10)
  - CONFUSIONAL STATE [None]
  - DRUG TOXICITY [None]
  - ELECTROCARDIOGRAM QRS COMPLEX PROLONGED [None]
  - GRAND MAL CONVULSION [None]
  - METABOLIC ACIDOSIS [None]
  - MULTIPLE DRUG OVERDOSE INTENTIONAL [None]
  - MYDRIASIS [None]
  - SINUS TACHYCARDIA [None]
  - SOMNOLENCE [None]
  - VENTRICULAR TACHYCARDIA [None]
